FAERS Safety Report 14495709 (Version 2)
Quarter: 2018Q1

REPORT INFORMATION
  Report Type: Spontaneous
  Country: FR (occurrence: FR)
  Receive Date: 20180206
  Receipt Date: 20180219
  Transmission Date: 20180509
  Serious: Yes (Hospitalization, Congenital Anomaly, Other)
  Sender: FDA-Public Use
  Company Number: FR-ABBVIE-18P-056-2247458-00

PATIENT
  Age: 6 Year
  Sex: Female

DRUGS (1)
  1. DEPAKINE [Suspect]
     Active Substance: VALPROATE SODIUM
     Indication: MATERNAL EXPOSURE TIMING UNSPECIFIED
     Route: 064
     Dates: start: 199505, end: 19961205

REACTIONS (22)
  - Talipes [Unknown]
  - Lordosis [Unknown]
  - Asthma [Unknown]
  - Congenital flat feet [Unknown]
  - Knee deformity [Unknown]
  - Speech disorder developmental [Unknown]
  - Cholelithiasis [Unknown]
  - Multiple congenital abnormalities [Unknown]
  - Vomiting [Unknown]
  - Urticaria [Recovered/Resolved]
  - Foetal exposure during pregnancy [Unknown]
  - Astigmatism [Unknown]
  - Decreased appetite [Unknown]
  - Biliary colic [Unknown]
  - Joint laxity [Unknown]
  - Ear infection [Not Recovered/Not Resolved]
  - Pyrexia [Unknown]
  - Congenital scoliosis [Unknown]
  - Scoliosis [Unknown]
  - Pelvic deformity [Unknown]
  - Arachnodactyly [Unknown]
  - Dysmorphism [Recovering/Resolving]

NARRATIVE: CASE EVENT DATE: 200312
